FAERS Safety Report 6321378-8 (Version None)
Quarter: 2009Q3

REPORT INFORMATION
  Report Type: 
  Country: None (occurrence: None)
  Receive Date: 20090822
  Receipt Date: 20090112
  Transmission Date: 20100115
  Serious: No
  Sender: FDA-Public Use
  Company Number: US-ABBOTT-09P-163-0497389-00

PATIENT
  Sex: Female
  Weight: 65.83 kg

DRUGS (5)
  1. NIASPAN [Suspect]
     Indication: BLOOD TRIGLYCERIDES
     Dates: start: 20081201
  2. LIPITOR [Concomitant]
     Indication: BLOOD CHOLESTEROL
     Dates: start: 19980101
  3. LISINOPRIL [Concomitant]
     Indication: BLOOD PRESSURE
     Dates: start: 20081201
  4. ASPIRIN [Concomitant]
     Indication: PROPHYLAXIS
     Dosage: ONE HALF HOUR PRIOR TO TAKING NIASPAN
  5. ASPIRIN [Concomitant]
     Indication: FLUSHING

REACTIONS (6)
  - FEELING ABNORMAL [None]
  - FEELING HOT [None]
  - FLUSHING [None]
  - GENERALISED ERYTHEMA [None]
  - HEADACHE [None]
  - HYPERTENSION [None]
